FAERS Safety Report 25248627 (Version 1)
Quarter: 2025Q2

REPORT INFORMATION
  Report Type: Report from Study
  Country: US (occurrence: US)
  Receive Date: 20250429
  Receipt Date: 20250429
  Transmission Date: 20250717
  Serious: Yes (Other)
  Sender: JOHNSON AND JOHNSON
  Company Number: US-JNJFOC-20250432055

PATIENT
  Age: 71 Year
  Sex: Female

DRUGS (5)
  1. SPRAVATO [Suspect]
     Active Substance: ESKETAMINE
     Indication: Depression
     Route: 045
     Dates: start: 20200317, end: 20200326
  2. SPRAVATO [Suspect]
     Active Substance: ESKETAMINE
     Route: 045
     Dates: start: 20200813, end: 20250103
  3. SPRAVATO [Suspect]
     Active Substance: ESKETAMINE
     Route: 045
     Dates: start: 20250422, end: 20250422
  4. TRAZODONE [Concomitant]
     Active Substance: TRAZODONE HYDROCHLORIDE
  5. MODAFINIL [Concomitant]
     Active Substance: MODAFINIL

REACTIONS (1)
  - Dissociation [Recovered/Resolved]

NARRATIVE: CASE EVENT DATE: 20250422
